FAERS Safety Report 4597879-X (Version None)
Quarter: 2005Q1

REPORT INFORMATION
  Report Type: 
  Country: None (occurrence: None)
  Receive Date: 20050301
  Receipt Date: 20050207
  Transmission Date: 20050727
  Serious: Yes (Other)
  Sender: FDA-Public Use
  Company Number: US_0501110994

PATIENT
  Sex: Male

DRUGS (8)
  1. ZYPREXA [Suspect]
     Indication: BIPOLAR DISORDER
     Dates: start: 19980601
  2. DEPAKOTE [Concomitant]
  3. WELLBUTRIN [Concomitant]
  4. NEOMYCIN, POLYMYXIN B SULFATE, HYDROCORTISONE [Concomitant]
  5. AUGMENTIN '125' [Concomitant]
  6. NASONEX [Concomitant]
  7. CLARITIN-D [Concomitant]
  8. NITROQUICK (GLYCERYL TRINITRATE) [Concomitant]

REACTIONS (17)
  - ANXIETY [None]
  - ARTHRALGIA [None]
  - BLOOD CHOLESTEROL INCREASED [None]
  - CORONARY ARTERY RESTENOSIS [None]
  - CORONARY ARTERY STENOSIS [None]
  - COUGH [None]
  - DIABETES MELLITUS NON-INSULIN-DEPENDENT [None]
  - DYSPNOEA [None]
  - ELECTROCARDIOGRAM ST SEGMENT DEPRESSION [None]
  - HYPOGLYCAEMIA [None]
  - ISCHAEMIA [None]
  - JOINT SWELLING [None]
  - LOW DENSITY LIPOPROTEIN INCREASED [None]
  - PALPITATIONS [None]
  - RESPIRATORY TRACT CONGESTION [None]
  - ROAD TRAFFIC ACCIDENT [None]
  - SUDDEN ONSET OF SLEEP [None]
